FAERS Safety Report 12352481 (Version 3)
Quarter: 2016Q3

REPORT INFORMATION
  Report Type: Report from Study
  Country: CA (occurrence: CA)
  Receive Date: 20160510
  Receipt Date: 20160721
  Transmission Date: 20161109
  Serious: Yes (Hospitalization, Other)
  Sender: FDA-Public Use
  Company Number: CA-JNJFOC-20160501130

PATIENT
  Age: 26 Year
  Sex: Female
  Weight: 56.8 kg

DRUGS (4)
  1. REMICADE [Suspect]
     Active Substance: INFLIXIMAB
     Indication: CROHN^S DISEASE
     Route: 042
     Dates: start: 20160713
  2. REMICADE [Suspect]
     Active Substance: INFLIXIMAB
     Indication: CROHN^S DISEASE
     Route: 042
  3. REMICADE [Suspect]
     Active Substance: INFLIXIMAB
     Indication: CROHN^S DISEASE
     Route: 042
     Dates: start: 20160610
  4. REMICADE [Suspect]
     Active Substance: INFLIXIMAB
     Indication: CROHN^S DISEASE
     Route: 042
     Dates: start: 20151217

REACTIONS (17)
  - Hypopnoea [Recovering/Resolving]
  - Body temperature increased [Unknown]
  - Eating disorder [Unknown]
  - Flushing [Unknown]
  - Oxygen saturation decreased [Recovering/Resolving]
  - Asthenia [Recovering/Resolving]
  - Dizziness [Recovering/Resolving]
  - Sepsis [Recovering/Resolving]
  - Cold sweat [Recovering/Resolving]
  - Chills [Unknown]
  - Pallor [Recovering/Resolving]
  - Infusion related reaction [Unknown]
  - Chest discomfort [Unknown]
  - Unresponsive to stimuli [Recovering/Resolving]
  - Pulse abnormal [Recovering/Resolving]
  - Syncope [Recovering/Resolving]
  - Weight increased [Unknown]

NARRATIVE: CASE EVENT DATE: 20160504
